FAERS Safety Report 14830877 (Version 4)
Quarter: 2020Q2

REPORT INFORMATION
  Report Type: Spontaneous
  Country: US (occurrence: US)
  Receive Date: 20180430
  Receipt Date: 20200601
  Transmission Date: 20200713
  Serious: No
  Sender: FDA-Public Use
  Company Number: US-SA-2018SA118118

PATIENT

DRUGS (4)
  1. PRALUENT [Suspect]
     Active Substance: ALIROCUMAB
     Indication: HYPERLIPIDAEMIA
     Dosage: 75 MG,QOW
     Route: 058
     Dates: start: 20171005, end: 20180601
  2. PRALUENT [Suspect]
     Active Substance: ALIROCUMAB
     Indication: BLOOD CHOLESTEROL ABNORMAL
     Dosage: 75 MG, Q4W
  3. PRALUENT [Suspect]
     Active Substance: ALIROCUMAB
     Dosage: 75 MG, Q3W
  4. PRALUENT [Suspect]
     Active Substance: ALIROCUMAB
     Dosage: 75 MG, QOW

REACTIONS (10)
  - Influenza like illness [Unknown]
  - Respiratory tract congestion [Unknown]
  - Throat irritation [Unknown]
  - Pain [Unknown]
  - Unevaluable event [Unknown]
  - Off label use [Unknown]
  - Nasal congestion [Unknown]
  - Head discomfort [Unknown]
  - Nasal discomfort [Unknown]
  - Chest discomfort [Unknown]

NARRATIVE: CASE EVENT DATE: 20180418
